FAERS Safety Report 16714843 (Version 1)
Quarter: 2019Q3

REPORT INFORMATION
  Report Type: Spontaneous
  Country: IT (occurrence: IT)
  Receive Date: 20190819
  Receipt Date: 20190819
  Transmission Date: 20191005
  Serious: Yes (Life-Threatening)
  Sender: FDA-Public Use
  Company Number: IT-ASTRAZENECA-2019SF17034

PATIENT
  Age: 61 Year
  Sex: Male
  Weight: 80 kg

DRUGS (8)
  1. ALLOPURINOL. [Suspect]
     Active Substance: ALLOPURINOL
     Indication: HYPERURICAEMIA
     Route: 048
     Dates: start: 20190626, end: 20190801
  2. RAMIPRIL. [Concomitant]
     Active Substance: RAMIPRIL
     Indication: HYPERTENSION
     Dosage: 10.0MG UNKNOWN
     Route: 048
     Dates: start: 20190621, end: 20190801
  3. COLCHICINE. [Concomitant]
     Active Substance: COLCHICINE
     Indication: HYPERURICAEMIA
     Dosage: 2.0MG UNKNOWN
     Route: 048
     Dates: start: 20190623, end: 20190702
  4. TORVAST [Concomitant]
     Active Substance: ATORVASTATIN
     Indication: HYPERCHOLESTEROLAEMIA
     Dosage: 80.0MG UNKNOWN
     Route: 048
     Dates: start: 20190618, end: 20190801
  5. CARDICOR [Concomitant]
     Active Substance: BISOPROLOL
     Indication: HYPERTENSION
     Dosage: 2.5MG UNKNOWN
     Dates: start: 20190619, end: 20190801
  6. BRILIQUE [Suspect]
     Active Substance: TICAGRELOR
     Indication: CORONARY ARTERY DISEASE
     Route: 048
     Dates: start: 20190619, end: 20190801
  7. CARDIOASPIRIN [Concomitant]
     Active Substance: ASPIRIN
     Indication: CORONARY ARTERY DISEASE
     Dosage: 100.0MG UNKNOWN
     Route: 048
     Dates: start: 20190619
  8. PANTORC [Concomitant]
     Active Substance: PANTOPRAZOLE SODIUM
     Indication: GASTROOESOPHAGEAL REFLUX DISEASE
     Dosage: 40.0MG UNKNOWN
     Route: 048
     Dates: start: 20190619

REACTIONS (5)
  - Acute kidney injury [Recovering/Resolving]
  - Erythema [Recovering/Resolving]
  - Lymphadenopathy [Recovering/Resolving]
  - Drug reaction with eosinophilia and systemic symptoms [Recovering/Resolving]
  - Face oedema [Recovering/Resolving]

NARRATIVE: CASE EVENT DATE: 20190728
